FAERS Safety Report 6832044-4 (Version None)
Quarter: 2010Q3

REPORT INFORMATION
  Report Type: 
  Country: None (occurrence: None)
  Receive Date: 20100712
  Receipt Date: 20100707
  Transmission Date: 20110219
  Serious: Yes (Hospitalization)
  Sender: FDA-Public Use
  Company Number: US-BRISTOL-MYERS SQUIBB COMPANY-15040926

PATIENT
  Age: 66 Year
  Sex: Female

DRUGS (18)
  1. XL139 [Suspect]
     Indication: METASTASES TO PERITONEUM
     Route: 048
     Dates: start: 20100304
  2. XL139 [Suspect]
     Indication: METASTATIC GASTRIC CANCER
     Route: 048
     Dates: start: 20100304
  3. CISPLATIN [Suspect]
     Indication: METASTATIC GASTRIC CANCER
     Route: 042
     Dates: start: 20100318
  4. CISPLATIN [Suspect]
     Indication: METASTASES TO PERITONEUM
     Route: 042
     Dates: start: 20100318
  5. XELODA [Suspect]
     Indication: METASTATIC GASTRIC CANCER
  6. XELODA [Suspect]
     Indication: METASTASES TO PERITONEUM
  7. SIMVASTATIN [Concomitant]
     Route: 048
     Dates: start: 20100210
  8. COZAAR [Concomitant]
     Dosage: TAB,Q6
     Route: 048
     Dates: start: 20100210
  9. POTASSIUM CHLORIDE [Concomitant]
     Dosage: TAB
     Route: 048
     Dates: start: 20100210
  10. HYDROCHLOROTHIAZIDE [Concomitant]
     Route: 048
     Dates: start: 20100210
  11. GLYBURIDE [Concomitant]
     Dates: start: 20091022
  12. NORVASC [Concomitant]
     Route: 048
     Dates: start: 20100210
  13. COLACE [Concomitant]
     Route: 048
     Dates: start: 20100319
  14. DILAUDID [Concomitant]
     Route: 048
  15. ZOFRAN [Concomitant]
     Route: 048
     Dates: start: 20100319
  16. PRILOSEC [Concomitant]
     Dosage: CAP
     Route: 048
     Dates: start: 20100319
  17. IMODIUM [Concomitant]
     Dates: start: 20100319
  18. REGLAN [Concomitant]
     Route: 048
     Dates: start: 20100319

REACTIONS (3)
  - CONDITION AGGRAVATED [None]
  - METASTASES TO PERITONEUM [None]
  - PANCREATITIS [None]
